FAERS Safety Report 5291339-9 (Version None)
Quarter: 2007Q2

REPORT INFORMATION
  Report Type: 
  Country: None (occurrence: None)
  Receive Date: 20070409
  Receipt Date: 20060619
  Transmission Date: 20071010
  Serious: Yes (Hospitalization)
  Sender: FDA-Public Use
  Company Number: DE-MERCK-0606DEU00028

PATIENT
  Age: 40 Year
  Sex: Female
  Weight: 70 kg

DRUGS (2)
  1. VASOTEC [Suspect]
     Indication: HYPERTENSION
     Route: 048
     Dates: start: 20060116, end: 20060101
  2. BISOPROLOL [Concomitant]
     Indication: HYPERTENSION
     Route: 065
     Dates: start: 20060101

REACTIONS (1)
  - ANGIOEDEMA [None]
